FAERS Safety Report 9479400 (Version 1)
Quarter: 2013Q3

REPORT INFORMATION
  Report Type: Spontaneous
  Country: US (occurrence: US)
  Receive Date: 20130827
  Receipt Date: 20130827
  Transmission Date: 20140515
  Serious: No
  Sender: FDA-Public Use
  Company Number: US-PFIZER INC-2013243021

PATIENT
  Sex: Female

DRUGS (2)
  1. CLINDAMYCIN HCL [Suspect]
     Indication: POSTOPERATIVE WOUND INFECTION
     Dosage: UNK
     Dates: start: 2013, end: 2013
  2. FLAGYL [Suspect]
     Indication: POSTOPERATIVE WOUND INFECTION
     Dosage: 500 MG, 3X/DAY
     Dates: start: 2013, end: 2013

REACTIONS (8)
  - Abdominal pain upper [Unknown]
  - Drug intolerance [Unknown]
  - Chest discomfort [Unknown]
  - Throat tightness [Unknown]
  - Dyspnoea [Unknown]
  - Nasopharyngitis [Unknown]
  - Sneezing [Unknown]
  - Upper respiratory tract congestion [Unknown]
